FAERS Safety Report 9111997 (Version 1)
Quarter: 2013Q1

REPORT INFORMATION
  Report Type: Spontaneous
  Country: US (occurrence: US)
  Receive Date: 20130219
  Receipt Date: 20130219
  Transmission Date: 20140127
  Serious: No
  Sender: FDA-Public Use
  Company Number: US-BRISTOL-MYERS SQUIBB COMPANY-16672156

PATIENT
  Age: 35 Year
  Sex: Female

DRUGS (1)
  1. ABATACEPT SUBQ INJECTION 125MG/ML [Suspect]
     Dosage: LAST DATE OF INJECTION:  27MAY2012 ?4-5 WEEKS
     Route: 058

REACTIONS (4)
  - Skin infection [Unknown]
  - Skin lesion [Unknown]
  - Aphthous stomatitis [Unknown]
  - Oral herpes [Unknown]
